FAERS Safety Report 15600428 (Version 1)
Quarter: 2018Q4

REPORT INFORMATION
  Report Type: Spontaneous
  Country: IT (occurrence: IT)
  Receive Date: 20181109
  Receipt Date: 20181109
  Transmission Date: 20190205
  Serious: Yes (Hospitalization)
  Sender: FDA-Public Use
  Company Number: IT-TEVA-2018-IT-974362

PATIENT
  Age: 78 Year
  Sex: Female

DRUGS (3)
  1. COUMADIN [Concomitant]
     Active Substance: WARFARIN SODIUM
     Route: 065
  2. BROMAZEPAM [Concomitant]
     Active Substance: BROMAZEPAM
     Route: 065
  3. VALSARTAN/IDROCLOROTIAZIDE [Suspect]
     Active Substance: HYDROCHLOROTHIAZIDE\VALSARTAN
     Indication: HYPERTENSION
     Dosage: 1 DOSAGE FORMS DAILY;
     Route: 048
     Dates: start: 20180101, end: 20180909

REACTIONS (5)
  - Hypokalaemia [Unknown]
  - Hyponatraemic syndrome [Unknown]
  - Headache [Unknown]
  - Vomiting [Unknown]
  - Nausea [Unknown]

NARRATIVE: CASE EVENT DATE: 20180909
